FAERS Safety Report 9838356 (Version 2)
Quarter: 2014Q1

REPORT INFORMATION
  Report Type: Report from Study
  Country: US (occurrence: US)
  Receive Date: 20140123
  Receipt Date: 20140123
  Transmission Date: 20141002
  Serious: Yes (Disabling)
  Sender: FDA-Public Use
  Company Number: US-B.I. PHARMACEUTICALS,INC./RIDGEFIELD-2013-BI-40372BI

PATIENT
  Age: 43 Year
  Sex: Male

DRUGS (12)
  1. GILOTRIF [Suspect]
     Indication: NON-SMALL CELL LUNG CANCER
     Dosage: 30 MG
     Route: 048
     Dates: start: 20131031
  2. GILOTRIF [Suspect]
     Indication: LUNG CARCINOMA CELL TYPE UNSPECIFIED STAGE 0
     Dosage: 30 MG
     Route: 048
     Dates: start: 20131101
  3. CETINIB [Concomitant]
     Indication: COLORECTAL CANCER
     Dosage: FOMULATION INFUSION DAILY DOSE: EVERY 2 WEEKS
  4. ADDERALL XR [Concomitant]
  5. CETRIZINE [Concomitant]
     Route: 048
  6. ANTI-ANXIETY MEDICATION [Concomitant]
  7. XYZAL [Concomitant]
     Indication: HYPERSENSITIVITY
  8. SINGULAIR [Concomitant]
     Indication: ASTHMA
  9. GENIC DILAUDID [Concomitant]
     Indication: HEADACHE
  10. NORCO [Concomitant]
     Indication: HEADACHE
  11. TRAMADOL [Concomitant]
     Indication: HEADACHE
  12. PRESCRIPTION CREAM [Concomitant]
     Indication: SKIN DISORDER

REACTIONS (6)
  - Anxiety [Not Recovered/Not Resolved]
  - Rash [Not Recovered/Not Resolved]
  - Stomatitis [Not Recovered/Not Resolved]
  - Pruritus [Not Recovered/Not Resolved]
  - Skin irritation [Recovered/Resolved]
  - Rash [Unknown]
